FAERS Safety Report 6690531-6 (Version None)
Quarter: 2010Q2

REPORT INFORMATION
  Report Type: 
  Country: None (occurrence: None)
  Receive Date: 20100421
  Receipt Date: 20100416
  Transmission Date: 20101027
  Serious: Yes (Hospitalization)
  Sender: FDA-Public Use
  Company Number: GR-MERCK-1004GRC00002

PATIENT
  Age: 57 Year
  Sex: Male

DRUGS (4)
  1. MODURETIC 5-50 [Suspect]
     Indication: OEDEMA PERIPHERAL
     Route: 048
     Dates: start: 20090727
  2. OLANZAPINE [Concomitant]
     Indication: DEPRESSION
     Route: 048
     Dates: start: 20040101
  3. FLUOXETINE HYDROCHLORIDE [Concomitant]
     Indication: DEPRESSION
     Route: 048
     Dates: start: 20060101
  4. FUROSEMIDE [Suspect]
     Indication: OEDEMA PERIPHERAL
     Route: 048
     Dates: start: 20090727

REACTIONS (1)
  - DRUG ERUPTION [None]
